FAERS Safety Report 24344242 (Version 1)
Quarter: 2024Q3

REPORT INFORMATION
  Report Type: Spontaneous
  Country: CN (occurrence: CN)
  Receive Date: 20240920
  Receipt Date: 20240920
  Transmission Date: 20241017
  Serious: Yes (Life-Threatening)
  Sender: EAGLE
  Company Number: PA2024CN000218

PATIENT
  Age: 64 Year
  Sex: Male
  Weight: 42 kg

DRUGS (1)
  1. REMIMAZOLAM [Suspect]
     Active Substance: REMIMAZOLAM
     Indication: Induction of anaesthesia
     Dosage: 4 MILLIGRAM, UNK
     Route: 042
     Dates: start: 20240904, end: 20240904

REACTIONS (1)
  - Shock [Recovered/Resolved]

NARRATIVE: CASE EVENT DATE: 20240904
